FAERS Safety Report 10073494 (Version 2)
Quarter: 2014Q2

REPORT INFORMATION
  Report Type: Spontaneous
  Country: DE (occurrence: DE)
  Receive Date: 20140411
  Receipt Date: 20140411
  Transmission Date: 20141212
  Serious: Yes (Other)
  Sender: FDA-Public Use
  Company Number: DE-UCBSA-110470

PATIENT
  Age: 73 Year
  Sex: Female

DRUGS (2)
  1. NEUPRO [Suspect]
     Indication: RESTLESS LEGS SYNDROME
     Dates: start: 20130503
  2. LYRICA [Concomitant]
     Dosage: 100 MG/DAY

REACTIONS (1)
  - Dermatitis allergic [Recovering/Resolving]
